FAERS Safety Report 6282306-7 (Version None)
Quarter: 2009Q3

REPORT INFORMATION
  Report Type: 
  Country: None (occurrence: None)
  Receive Date: 20090724
  Receipt Date: 20090721
  Transmission Date: 20100115
  Serious: Yes (Death, Other)
  Sender: FDA-Public Use
  Company Number: CA-BAYER-200926100NA

PATIENT
  Age: 26 Year
  Sex: Female
  Weight: 136 kg

DRUGS (3)
  1. YASMIN [Suspect]
     Indication: ORAL CONTRACEPTION
     Dosage: TOTAL DAILY DOSE: 1 DF
     Route: 048
  2. SYMBICORT INHALER [Concomitant]
     Indication: ASTHMA
  3. NAPROXEN [Concomitant]
     Indication: MUSCLE SPASMS
     Dosage: 750 MG BID
     Route: 048

REACTIONS (2)
  - DYSPNOEA [None]
  - PULMONARY EMBOLISM [None]
